FAERS Safety Report 7262021-3 (Version None)
Quarter: 2011Q1

REPORT INFORMATION
  Report Type: 
  Country: None (occurrence: None)
  Receive Date: 20110130
  Receipt Date: 20101104
  Transmission Date: 20110831
  Serious: No
  Sender: FDA-Public Use
  Company Number: US-ABBOTT-10P-163-0683443-00

PATIENT
  Sex: Female

DRUGS (4)
  1. HUMIRA [Suspect]
     Indication: CROHN'S DISEASE
     Dates: start: 20101001, end: 20101001
  2. HUMIRA [Suspect]
     Dates: start: 20101101
  3. HUMIRA [Suspect]
     Dates: start: 20101101, end: 20101101
  4. HUMIRA [Suspect]

REACTIONS (1)
  - INCREASED TENDENCY TO BRUISE [None]
